FAERS Safety Report 5010041-1 (Version None)
Quarter: 2006Q2

REPORT INFORMATION
  Report Type: 
  Country: None (occurrence: None)
  Receive Date: 20060404
  Receipt Date: 20051114
  Transmission Date: 20061013
  Serious: No
  Sender: FDA-Public Use
  Company Number: US200511000906

PATIENT
  Age: 45 Year
  Sex: Female

DRUGS (9)
  1. CYMBALTA [Suspect]
     Indication: ANXIETY
     Dosage: 20 MG, 2/D
     Dates: start: 20050910
  2. PERCOCET [Concomitant]
  3. DARVON (HCL) (PROPOXYPHENE HYDROCHLORIDE) CAPSULE [Concomitant]
  4. VICODIN [Concomitant]
  5. RU-TUSS (ATROPINE SULFATE, CHLORPHENAMINE MALEATE, HYOSCINE HYDROBROMI [Concomitant]
  6. VITAMIN E [Concomitant]
  7. C-VITAMIN (ASCORBIC ACID) [Concomitant]
  8. MULTIVITAMINS (ASCORBIC ACID, ERGOCALCIFEROL, FOLIC ACID, NICOTINAMIDE [Concomitant]
  9. ALBUTEROL [Concomitant]

REACTIONS (1)
  - OPIATES POSITIVE [None]
